FAERS Safety Report 5380728-X (Version None)
Quarter: 2007Q3

REPORT INFORMATION
  Report Type: 
  Country: None (occurrence: None)
  Receive Date: 20070706
  Receipt Date: 20070627
  Transmission Date: 20080115
  Serious: Yes (Life-Threatening)
  Sender: FDA-Public Use
  Company Number: DE-MERCK-0706DEU00140

PATIENT
  Age: 81 Year
  Sex: Male
  Weight: 54 kg

DRUGS (5)
  1. PRIMAXIN [Suspect]
     Indication: SEPSIS
     Route: 042
     Dates: start: 20070428, end: 20070511
  2. PRIMAXIN [Suspect]
     Indication: BRONCHOPNEUMONIA
     Route: 042
     Dates: start: 20070428, end: 20070511
  3. ROCEPHIN [Suspect]
     Indication: BRONCHOPNEUMONIA
     Route: 042
     Dates: start: 20070428, end: 20070429
  4. FRAXIPARIN [Suspect]
     Indication: THROMBOSIS PROPHYLAXIS
     Route: 058
     Dates: start: 20070428, end: 20070507
  5. ASPIRIN [Concomitant]
     Indication: PYREXIA
     Route: 042
     Dates: start: 20070428, end: 20070429

REACTIONS (6)
  - GASTROINTESTINAL HAEMORRHAGE [None]
  - HAEMORRHAGE [None]
  - POST PROCEDURAL HAEMORRHAGE [None]
  - PROTHROMBIN TIME PROLONGED [None]
  - PSEUDOMEMBRANOUS COLITIS [None]
  - PUNCTURE SITE HAEMORRHAGE [None]
